FAERS Safety Report 7917712-5 (Version None)
Quarter: 2011Q4

REPORT INFORMATION
  Report Type: 
  Country: None (occurrence: None)
  Receive Date: 20111116
  Receipt Date: 20111107
  Transmission Date: 20120403
  Serious: Yes (Other)
  Sender: FDA-Public Use
  Company Number: DE-ALEXION-A201101695

PATIENT
  Sex: Female

DRUGS (2)
  1. AZITHROMYCIN [Concomitant]
  2. SOLIRIS [Suspect]
     Indication: HAEMOLYTIC URAEMIC SYNDROME
     Dosage: UNK
     Route: 042
     Dates: start: 20110601, end: 20110801

REACTIONS (1)
  - ACUTE MYELOID LEUKAEMIA [None]
